FAERS Safety Report 15477736 (Version 1)
Quarter: 2018Q4

REPORT INFORMATION
  Report Type: Report from Study
  Country: US (occurrence: US)
  Receive Date: 20181009
  Receipt Date: 20181009
  Transmission Date: 20190205
  Serious: Yes (Other)
  Sender: FDA-Public Use
  Company Number: US-ROCHE-2049012

PATIENT
  Age: 12 Year
  Sex: Male
  Weight: 40.75 kg

DRUGS (5)
  1. NUTROPIN AQ [Suspect]
     Active Substance: SOMATROPIN
     Dosage: ONGOING: YES
     Route: 058
     Dates: start: 20170929
  2. NOVOFINE [Concomitant]
     Active Substance: INSULIN NOS
  3. NUTROPIN AQ [Suspect]
     Active Substance: SOMATROPIN
     Indication: GROWTH HORMONE DEFICIENCY
     Dosage: ONGOING: YES
     Route: 058
     Dates: start: 20170630
  4. NUTROPIN AQ [Suspect]
     Active Substance: SOMATROPIN
     Indication: HYPOPITUITARISM
     Route: 058
     Dates: start: 20170118
  5. NUTROPIN AQ [Suspect]
     Active Substance: SOMATROPIN
     Route: 058

REACTIONS (4)
  - Concussion [Recovered/Resolved]
  - Wrist fracture [Unknown]
  - Influenza [Not Recovered/Not Resolved]
  - Thyroxine free increased [Unknown]

NARRATIVE: CASE EVENT DATE: 201711
